FAERS Safety Report 4941766-1 (Version None)
Quarter: 2006Q1

REPORT INFORMATION
  Report Type: 
  Country: None (occurrence: None)
  Receive Date: 20060308
  Receipt Date: 20060223
  Transmission Date: 20060701
  Serious: Yes (Disabling, Other)
  Sender: FDA-Public Use
  Company Number: 2005063225

PATIENT
  Age: 40 Year
  Sex: Male
  Weight: 81.6475 kg

DRUGS (6)
  1. BEXTRA [Suspect]
     Indication: BACK PAIN
     Dosage: 40 MG (20 MG, 2 IN 1 D), ORAL
     Route: 048
     Dates: start: 20040701, end: 20050401
  2. CELEBREX [Suspect]
     Indication: BACK PAIN
     Dates: start: 20030101
  3. METHADONE HCL [Suspect]
     Indication: ILL-DEFINED DISORDER
     Dosage: ORAL
     Route: 048
     Dates: start: 20030101, end: 20050101
  4. HYDROCODONE BITARTRATE [Concomitant]
  5. CLONAZEPAM [Concomitant]
  6. ESCITALOPRAM (ESCITALOPRAM) [Concomitant]

REACTIONS (34)
  - ACCIDENT [None]
  - ACNE [None]
  - AMNESIA [None]
  - ANGER [None]
  - ANOREXIA [None]
  - BACK PAIN [None]
  - CHEILITIS [None]
  - CONDITION AGGRAVATED [None]
  - CONSTIPATION [None]
  - CONVULSION [None]
  - DIZZINESS [None]
  - DRUG INEFFECTIVE [None]
  - DRUG WITHDRAWAL SYNDROME [None]
  - DYSURIA [None]
  - ECONOMIC PROBLEM [None]
  - FALL [None]
  - GINGIVAL ATROPHY [None]
  - GINGIVAL DISORDER [None]
  - HEAT STROKE [None]
  - HERPES VIRUS INFECTION [None]
  - HYPOAESTHESIA [None]
  - IMPAIRED WORK ABILITY [None]
  - INJURY [None]
  - LOSS OF CONSCIOUSNESS [None]
  - MOVEMENT DISORDER [None]
  - MUSCLE SPASMS [None]
  - NASAL DISORDER [None]
  - NASAL MUCOSAL DISORDER [None]
  - RASH [None]
  - STOMATITIS [None]
  - STRESS [None]
  - TOOTH EXTRACTION [None]
  - URTICARIA [None]
  - WEIGHT DECREASED [None]
